FAERS Safety Report 9449983 (Version 1)
Quarter: 2013Q3

REPORT INFORMATION
  Report Type: Spontaneous
  Country: US (occurrence: US)
  Receive Date: 20130809
  Receipt Date: 20130809
  Transmission Date: 20140515
  Serious: No
  Sender: FDA-Public Use
  Company Number: US-PFIZER INC-2013230824

PATIENT
  Sex: Female

DRUGS (3)
  1. LYRICA [Suspect]
     Dosage: UNK
  2. GEODON [Suspect]
     Dosage: UNK
  3. LAMICTAL [Suspect]
     Dosage: UNK

REACTIONS (2)
  - Intentional drug misuse [Unknown]
  - Nausea [Unknown]
